FAERS Safety Report 24908558 (Version 1)
Quarter: 2025Q1

REPORT INFORMATION
  Report Type: Spontaneous
  Country: US (occurrence: US)
  Receive Date: 20250131
  Receipt Date: 20250131
  Transmission Date: 20250409
  Serious: Yes (Other)
  Sender: GRAVITI PHARMACEUTICALS PRIVATE LIMITED
  Company Number: US-GRAVITIPHARMA-GRA-2501-US-LIT-0047

PATIENT

DRUGS (3)
  1. BUPROPION HYDROCHLORIDE [Suspect]
     Active Substance: BUPROPION HYDROCHLORIDE
     Indication: Product used for unknown indication
     Route: 064
  2. RITUXIMAB [Suspect]
     Active Substance: RITUXIMAB
     Indication: Multiple sclerosis
     Route: 064
  3. CLONAZEPAM [Suspect]
     Active Substance: CLONAZEPAM
     Indication: Product used for unknown indication
     Route: 064

REACTIONS (7)
  - Laryngeal cleft [Unknown]
  - Syndactyly [Unknown]
  - Respiratory disorder [Unknown]
  - Micrognathia [Unknown]
  - Jaundice [Unknown]
  - Gastrointestinal disorder [Unknown]
  - Foetal exposure during pregnancy [Unknown]
